FAERS Safety Report 25381479 (Version 2)
Quarter: 2025Q3

REPORT INFORMATION
  Report Type: Report from Study
  Country: US (occurrence: US)
  Receive Date: 20250530
  Receipt Date: 20250701
  Transmission Date: 20251020
  Serious: No
  Sender: MALLINCKRODT
  Company Number: US-MALLINCKRODT-MNK202503129

PATIENT
  Age: 51 Year
  Sex: Male

DRUGS (5)
  1. CORTICOTROPIN [Suspect]
     Active Substance: CORTICOTROPIN
     Indication: Nephrotic syndrome
     Route: 058
  2. CYTOXAN [Concomitant]
     Active Substance: CYCLOPHOSPHAMIDE
  3. RITUXAN [Concomitant]
     Active Substance: RITUXIMAB
  4. TACROLIMUS [Concomitant]
     Active Substance: TACROLIMUS
  5. FARXIGA [Concomitant]
     Active Substance: DAPAGLIFLOZIN PROPANEDIOL

REACTIONS (4)
  - Fall [Unknown]
  - Adverse event [Unknown]
  - Micturition disorder [Unknown]
  - Intra-abdominal fluid collection [Unknown]
